FAERS Safety Report 5813760-X (Version None)
Quarter: 2008Q3

REPORT INFORMATION
  Report Type: 
  Country: None (occurrence: None)
  Receive Date: 20080717
  Receipt Date: 20080710
  Transmission Date: 20090109
  Serious: Yes (Other)
  Sender: FDA-Public Use
  Company Number: PHHY2008BR06230

PATIENT
  Age: 22 Year
  Sex: Female
  Weight: 91 kg

DRUGS (2)
  1. APRESOLINE [Suspect]
     Indication: HYPERTENSION
     Dosage: 25 MG, Q8H
     Route: 048
     Dates: start: 20080418
  2. APRESOLINE [Suspect]
     Dosage: 25 MG, BID
     Route: 048
     Dates: end: 20080517

REACTIONS (8)
  - BLOOD PRESSURE INCREASED [None]
  - BREAST FEEDING [None]
  - CAESAREAN SECTION [None]
  - DRUG EXPOSURE DURING PREGNANCY [None]
  - NORMAL NEWBORN [None]
  - PROCEDURAL SITE REACTION [None]
  - TREMOR [None]
  - VOMITING [None]
